FAERS Safety Report 7105161-1 (Version None)
Quarter: 2010Q4

REPORT INFORMATION
  Report Type: 
  Country: None (occurrence: None)
  Receive Date: 20101116
  Receipt Date: 20101110
  Transmission Date: 20110411
  Serious: Yes (Death)
  Sender: FDA-Public Use
  Company Number: US-CELGENEUS-163-21880-10070291

PATIENT
  Sex: Male

DRUGS (3)
  1. REVLIMID [Suspect]
     Route: 048
     Dates: start: 20100101
  2. REVLIMID [Suspect]
     Route: 048
     Dates: start: 20081201
  3. REVLIMID [Suspect]
     Dosage: 10-5 MG
     Route: 048
     Dates: start: 20090801

REACTIONS (2)
  - HEPATIC NEOPLASM MALIGNANT [None]
  - RESPIRATORY ARREST [None]
